FAERS Safety Report 7024719-1 (Version None)
Quarter: 2010Q3

REPORT INFORMATION
  Report Type: 
  Country: None (occurrence: None)
  Receive Date: 20100929
  Receipt Date: 20100916
  Transmission Date: 20110219
  Serious: Yes (Other)
  Sender: FDA-Public Use
  Company Number: A-CH2010-39812

PATIENT
  Age: 67 Year
  Sex: Female

DRUGS (3)
  1. ZAVESCA [Suspect]
     Indication: NIEMANN-PICK DISEASE
     Dosage: ORAL
     Route: 048
     Dates: start: 20100801
  2. PHENOBARBITAL TAB [Suspect]
  3. LEVETIRACETAM [Suspect]

REACTIONS (2)
  - DRUG INTERACTION [None]
  - EPILEPSY [None]
